FAERS Safety Report 6610875-3 (Version None)
Quarter: 2010Q1

REPORT INFORMATION
  Report Type: 
  Country: None (occurrence: None)
  Receive Date: 20100219
  Receipt Date: 20100210
  Transmission Date: 20100710
  Serious: No
  Sender: FDA-Public Use
  Company Number: 20108177

PATIENT
  Age: 44 Year
  Sex: Male

DRUGS (3)
  1. BACLOFEN [Suspect]
     Indication: MUSCLE SPASTICITY
     Dosage: 75 M CG, DAILY, INTRATHECAL
     Route: 037
  2. CLONAZEPAM [Concomitant]
  3. BOTOX [Concomitant]

REACTIONS (1)
  - IMPLANT SITE EFFUSION [None]
